FAERS Safety Report 7810531-X (Version None)
Quarter: 2011Q4

REPORT INFORMATION
  Report Type: 
  Country: None (occurrence: None)
  Receive Date: 20111013
  Receipt Date: 20111003
  Transmission Date: 20120403
  Serious: Yes (Life-Threatening, Hospitalization, Disabling, Other)
  Sender: FDA-Public Use
  Company Number: GR-BIOGENIDEC-2011BI021549

PATIENT
  Age: 47 Year
  Sex: Female
  Weight: 68 kg

DRUGS (3)
  1. TYSABRI [Suspect]
     Indication: MULTIPLE SCLEROSIS
     Route: 042
     Dates: start: 20080801, end: 20110525
  2. MIRTAZAPINE [Concomitant]
     Indication: DEPRESSION
     Dates: start: 20110608, end: 20110709
  3. ESCITALOPRAM [Concomitant]
     Indication: DEPRESSION
     Dates: start: 20110315, end: 20110602

REACTIONS (3)
  - PROGRESSIVE MULTIFOCAL LEUKOENCEPHALOPATHY [None]
  - DEPRESSION [None]
  - PSYCHOTIC DISORDER [None]
